FAERS Safety Report 13425240 (Version 3)
Quarter: 2017Q2

REPORT INFORMATION
  Report Type: Spontaneous
  Country: DE (occurrence: DE)
  Receive Date: 20170411
  Receipt Date: 20170519
  Transmission Date: 20170830
  Serious: Yes (Hospitalization, Other)
  Sender: FDA-Public Use
  Company Number: PHHY2017DE051363

PATIENT
  Sex: Female

DRUGS (2)
  1. VENLAFAXINE [Concomitant]
     Active Substance: VENLAFAXINE HYDROCHLORIDE
     Indication: DEPRESSION
     Dosage: 150 MG, QD
     Route: 048
  2. GILENYA [Suspect]
     Active Substance: FINGOLIMOD HYDROCHLORIDE
     Indication: MULTIPLE SCLEROSIS
     Dosage: 0.5 MG, QD (DAILY)
     Route: 048
     Dates: start: 20100920, end: 20170223

REACTIONS (8)
  - Paraplegia [Unknown]
  - Hypoaesthesia [Unknown]
  - Fatigue [Unknown]
  - Liver function test increased [Recovering/Resolving]
  - Diplopia [Unknown]
  - Rebound effect [Recovering/Resolving]
  - Saccadic eye movement [Unknown]
  - Paresis [Unknown]

NARRATIVE: CASE EVENT DATE: 20161110
